FAERS Safety Report 9317647 (Version 2)
Quarter: 2013Q3

REPORT INFORMATION
  Report Type: Spontaneous
  Country: US (occurrence: US)
  Receive Date: 20130530
  Receipt Date: 20130709
  Transmission Date: 20140515
  Serious: No
  Sender: FDA-Public Use
  Company Number: US-ASTRAZENECA-2013SE35822

PATIENT
  Age: 71 Year
  Sex: Male
  Weight: 53.1 kg

DRUGS (2)
  1. FASLODEX [Suspect]
     Indication: BREAST CANCER MALE
     Route: 030
     Dates: start: 20121025
  2. FASLODEX [Suspect]
     Indication: BREAST CANCER MALE
     Route: 030
     Dates: start: 20130514

REACTIONS (1)
  - Injection site haemorrhage [Unknown]
